FAERS Safety Report 5623582-0 (Version None)
Quarter: 2008Q1

REPORT INFORMATION
  Report Type: 
  Country: None (occurrence: None)
  Receive Date: 20080212
  Receipt Date: 20080205
  Transmission Date: 20080703
  Serious: Yes (Hospitalization)
  Sender: FDA-Public Use
  Company Number: JP-BOEHRINGER INGELHEIM GMBH, GERMANY-2008-BP-01792NB

PATIENT
  Age: 76 Year
  Sex: Female

DRUGS (3)
  1. MICARDIS [Suspect]
     Route: 048
     Dates: start: 20071201, end: 20080126
  2. AMLODIPINE BESYLATE [Concomitant]
     Route: 048
  3. ALOSEN (SENNA LEAF_SENNA POD) [Concomitant]
     Route: 048

REACTIONS (1)
  - HYPOGLYCAEMIA [None]
